FAERS Safety Report 10490146 (Version 3)
Quarter: 2014Q4

REPORT INFORMATION
  Report Type: Spontaneous
  Country: US (occurrence: US)
  Receive Date: 20141002
  Receipt Date: 20141127
  Transmission Date: 20150528
  Serious: Yes (Other)
  Sender: FDA-Public Use
  Company Number: US-AMGEN-USASP2014055172

PATIENT
  Age: 63 Year
  Sex: Female
  Weight: 68.49 kg

DRUGS (7)
  1. LOVASTATIN. [Concomitant]
     Active Substance: LOVASTATIN
     Route: 048
  2. METFORMIN [Concomitant]
     Active Substance: METFORMIN HYDROCHLORIDE
     Route: 048
  3. PROLIA [Suspect]
     Active Substance: DENOSUMAB
     Indication: OSTEOPOROSIS POSTMENOPAUSAL
     Dosage: 60 MG, Q6MO
     Route: 058
     Dates: start: 20140624
  4. VITAMINS                           /00067501/ [Concomitant]
  5. NORTRIPTYLINE [Concomitant]
     Active Substance: NORTRIPTYLINE
     Route: 048
  6. PROCARDIA [Concomitant]
     Active Substance: NIFEDIPINE
     Route: 048
  7. RANITIDINE [Concomitant]
     Active Substance: RANITIDINE\RANITIDINE HYDROCHLORIDE
     Route: 048

REACTIONS (4)
  - Diarrhoea [Recovered/Resolved]
  - Gastritis [Unknown]
  - Clostridium test positive [Unknown]
  - Coeliac disease [Unknown]

NARRATIVE: CASE EVENT DATE: 20140624
